FAERS Safety Report 17622214 (Version 1)
Quarter: 2020Q2

REPORT INFORMATION
  Report Type: Spontaneous
  Country: US (occurrence: US)
  Receive Date: 20200403
  Receipt Date: 20200403
  Transmission Date: 20200713
  Serious: No
  Sender: FDA-Public Use
  Company Number: US-SUNOVION-2020SUN001035

PATIENT
  Age: 63 Year
  Sex: Female

DRUGS (1)
  1. BROVANA [Suspect]
     Active Substance: ARFORMOTEROL TARTRATE
     Dosage: 15 ?G, QD
     Route: 055

REACTIONS (7)
  - Myalgia [Unknown]
  - Pneumonitis [Unknown]
  - Body temperature increased [Unknown]
  - Decreased appetite [Unknown]
  - Nausea [Unknown]
  - Underdose [Unknown]
  - Dyspnoea [Unknown]
